FAERS Safety Report 9618606 (Version 2)
Quarter: 2013Q4

REPORT INFORMATION
  Report Type: Spontaneous
  Country: US (occurrence: US)
  Receive Date: 20131014
  Receipt Date: 20131111
  Transmission Date: 20140711
  Serious: No
  Sender: FDA-Public Use
  Company Number: US-PFIZER INC-2013293393

PATIENT
  Age: 81 Year
  Sex: Male
  Weight: 78.46 kg

DRUGS (4)
  1. AMIODARONE HCL [Suspect]
     Indication: ARRHYTHMIA
     Dosage: 200 MG, 1X/DAY
  2. ROBITUSSIN COUGH AND CONGESTION FORMULA [Interacting]
     Indication: RESPIRATORY TRACT CONGESTION
     Dosage: UNK
     Dates: start: 20131009, end: 20131009
  3. ASPIRIN [Interacting]
     Dosage: 81 MG, 2X/DAY
  4. COUMADIN [Interacting]
     Indication: ANTICOAGULANT THERAPY
     Dosage: 5 MG, 1X/DAY

REACTIONS (4)
  - Drug interaction [Unknown]
  - Feeling abnormal [Recovering/Resolving]
  - Abnormal behaviour [Recovering/Resolving]
  - Eye disorder [Unknown]
